FAERS Safety Report 10060298 (Version 3)
Quarter: 2014Q2

REPORT INFORMATION
  Report Type: Report from Study
  Country: BR (occurrence: BR)
  Receive Date: 20140404
  Receipt Date: 20140523
  Transmission Date: 20141212
  Serious: Yes (Hospitalization)
  Sender: FDA-Public Use
  Company Number: PHHY2014BR038553

PATIENT
  Age: 30 Year
  Sex: Male
  Weight: 51 kg

DRUGS (9)
  1. ZOTEON PODHALER [Suspect]
     Indication: PSEUDOMONAS INFECTION
     Dosage: 8 DF (8 CAPSULES), DAILY
     Dates: start: 20140320, end: 20140320
  2. ZOTEON PODHALER [Suspect]
     Dosage: 8 DF, (4CAPSULE IN THE MORNING AND 4 CAPSULE IN THE NIGHT)
     Dates: start: 20140425
  3. CIPRO [Concomitant]
     Indication: PYREXIA
     Dosage: 1 DF, Q12H
  4. CIPRO [Concomitant]
     Indication: SECRETION DISCHARGE
  5. PULMOZYME [Concomitant]
     Indication: CYSTIC FIBROSIS
     Dosage: 1 DF, DAILY
  6. PULMOZYME [Concomitant]
     Indication: SECRETION DISCHARGE
  7. AZITHROMYCIN [Concomitant]
     Indication: PYREXIA
     Dosage: 1 DF, DAILY
  8. AZITHROMYCIN [Concomitant]
     Indication: SECRETION DISCHARGE
  9. TOBI [Concomitant]
     Dosage: UNK UKN, UNK
     Route: 055

REACTIONS (4)
  - Chest pain [Recovering/Resolving]
  - Dyspnoea [Recovering/Resolving]
  - Pyrexia [Recovering/Resolving]
  - Headache [Recovering/Resolving]
